FAERS Safety Report 8117747-6 (Version None)
Quarter: 2011Q4

REPORT INFORMATION
  Report Type: 
  Country: None (occurrence: None)
  Receive Date: 20111227
  Receipt Date: 20101118
  Transmission Date: 20120403
  Serious: Yes (Other)
  Sender: FDA-Public Use
  Company Number: PHHY2010US58347

PATIENT
  Age: 73 Year
  Sex: Female

DRUGS (1)
  1. FEMARA [Suspect]
     Indication: BREAST CANCER
     Dosage: 2.5 MG, QD, ORAL, 2.5 MG, DAILY, ORAL
     Route: 048
     Dates: start: 20100601

REACTIONS (1)
  - TIBIA FRACTURE [None]
